FAERS Safety Report 18887746 (Version 1)
Quarter: 2021Q1

REPORT INFORMATION
  Report Type: Spontaneous
  Country: FR (occurrence: FR)
  Receive Date: 20210212
  Receipt Date: 20210212
  Transmission Date: 20210420
  Serious: Yes (Death, Other)
  Sender: FDA-Public Use
  Company Number: FR-ALLERGAN-2106251US

PATIENT

DRUGS (1)
  1. CEFTAZIDIME;AVIBACTAM ? BP [Suspect]
     Active Substance: AVIBACTAM SODIUM\CEFTAZIDIME
     Indication: COVID-19
     Dosage: UNK

REACTIONS (4)
  - Renal failure [Fatal]
  - Drug ineffective for unapproved indication [Fatal]
  - Hypersensitivity [Fatal]
  - Off label use [Fatal]
